FAERS Safety Report 7909119-1 (Version None)
Quarter: 2011Q4

REPORT INFORMATION
  Report Type: 
  Country: None (occurrence: None)
  Receive Date: 20111111
  Receipt Date: 20110414
  Transmission Date: 20120403
  Serious: No
  Sender: FDA-Public Use
  Company Number: US-GLAXOSMITHKLINE-A0698436A

PATIENT
  Sex: Male

DRUGS (2)
  1. CARVEDILOL [Suspect]
     Indication: HYPERTENSION
     Route: 048
  2. COREG [Concomitant]
     Indication: HYPERTENSION
     Route: 048
     Dates: start: 20040101

REACTIONS (6)
  - PRODUCT QUALITY ISSUE [None]
  - ADVERSE EVENT [None]
  - TREATMENT NONCOMPLIANCE [None]
  - DRUG INEFFECTIVE [None]
  - UPPER RESPIRATORY TRACT CONGESTION [None]
  - DRUG INTOLERANCE [None]
